FAERS Safety Report 8021939-4 (Version None)
Quarter: 2011Q4

REPORT INFORMATION
  Report Type: 
  Country: None (occurrence: None)
  Receive Date: 20111230
  Receipt Date: 20111219
  Transmission Date: 20120403
  Serious: Yes (Death, Life-Threatening, Hospitalization, Other)
  Sender: FDA-Public Use
  Company Number: 2011MA017784

PATIENT
  Sex: Female

DRUGS (26)
  1. ALDACTONE [Concomitant]
  2. ASPIRIN [Concomitant]
  3. CARVEDILOL [Concomitant]
  4. LASIX [Concomitant]
  5. PRIMACOR [Concomitant]
  6. AMBIEN [Concomitant]
  7. APAP TAB [Concomitant]
  8. BORDEAUX [Concomitant]
  9. CORZELEN [Concomitant]
  10. HEPARIN [Concomitant]
  11. AMIODARONE HCL [Concomitant]
  12. CENTRUM SILVER [Concomitant]
  13. MOTRIN [Concomitant]
  14. NEXIUM [Concomitant]
  15. POTASSIUM CHLORIDE [Concomitant]
  16. PREDNISONE TAB [Concomitant]
  17. VITAMIN B COMPLEX CAP [Concomitant]
  18. MORPHINE [Concomitant]
  19. PAXIL [Concomitant]
  20. PERCOCET [Concomitant]
  21. FOSINOPRIL SODIUM [Concomitant]
  22. KEFLEX [Concomitant]
  23. DIGOXIN [Suspect]
     Indication: PRODUCT USED FOR UNKNOWN INDICATION
     Dosage: 125 MCG, QD, PO
     Route: 048
     Dates: start: 20060525, end: 20080213
  24. ANCEF [Concomitant]
  25. NT FACTOR [Concomitant]
  26. Q-10 [Concomitant]

REACTIONS (44)
  - GOUT [None]
  - PANIC ATTACK [None]
  - DIZZINESS [None]
  - ANAEMIA [None]
  - LUNG INFILTRATION [None]
  - BLOOD POTASSIUM DECREASED [None]
  - DECREASED APPETITE [None]
  - FLUID INTAKE REDUCED [None]
  - PNEUMONIA [None]
  - SCAR [None]
  - TRICUSPID VALVE INCOMPETENCE [None]
  - ERYTHEMA [None]
  - INSOMNIA [None]
  - VENTRICULAR TACHYCARDIA [None]
  - HYPONATRAEMIA [None]
  - PAIN IN EXTREMITY [None]
  - CELLULITIS [None]
  - ANXIETY [None]
  - PLEURAL EFFUSION [None]
  - HYPERTENSION [None]
  - WEIGHT DECREASED [None]
  - PALPITATIONS [None]
  - ENCEPHALOPATHY [None]
  - DIABETES MELLITUS INADEQUATE CONTROL [None]
  - MITRAL VALVE INCOMPETENCE [None]
  - PULMONARY HYPERTENSION [None]
  - BUNDLE BRANCH BLOCK LEFT [None]
  - INJURY [None]
  - HYPOTENSION [None]
  - PROTHROMBIN TIME PROLONGED [None]
  - ACTIVATED PARTIAL THROMBOPLASTIN TIME PROLONGED [None]
  - VENTRICULAR EXTRASYSTOLES [None]
  - CARDIAC FAILURE CONGESTIVE [None]
  - OSTEOARTHRITIS [None]
  - WEIGHT BEARING DIFFICULTY [None]
  - GLUCOSE TOLERANCE IMPAIRED [None]
  - FATIGUE [None]
  - CARDIOGENIC SHOCK [None]
  - CONGESTIVE CARDIOMYOPATHY [None]
  - RENAL FAILURE ACUTE [None]
  - METABOLIC ACIDOSIS [None]
  - HYPOPERFUSION [None]
  - CARDIAC MURMUR [None]
  - ATRIAL FIBRILLATION [None]
